FAERS Safety Report 8569676 (Version 3)
Quarter: 2012Q4

REPORT INFORMATION
  Report Type: 
  Country: US (occurrence: US)
  Receive Date: 20120518
  Receipt Date: 20121019
  Transmission Date: 20130627
  Serious: Yes (Other)
  Sender: FDA-Public Use
  Company Number: US-B.I. PHARMACEUTICALS,INC./RIDGEFIELD-2012-BP-10537BP

PATIENT
  Age: 75 Year
  Sex: Male

DRUGS (10)
  1. PRADAXA [Suspect]
     Indication: CARDIOVASCULAR EVENT PROPHYLAXIS
     Dosage: 300 mg
     Route: 048
     Dates: start: 20120503, end: 201207
  2. PRADAXA [Suspect]
     Indication: HEART RATE IRREGULAR
     Dosage: 150 mg
     Route: 048
     Dates: start: 201207
  3. MINOXIDIL [Concomitant]
     Indication: HYPERTENSION
     Dosage: 7.5 mg
     Route: 048
     Dates: start: 1980
  4. LISINOPRIL [Concomitant]
     Indication: HYPERTENSION
     Route: 048
     Dates: start: 1980
  5. LYRICA [Concomitant]
     Indication: NERVOUS SYSTEM DISORDER
     Route: 048
  6. UNKNOWN DIURETIC [Concomitant]
     Indication: HYPERTENSION
  7. AMIODARONE [Concomitant]
     Indication: HEART RATE IRREGULAR
     Route: 048
     Dates: start: 201206
  8. AMIODARONE [Concomitant]
     Route: 048
  9. SYNTHROID [Concomitant]
     Indication: HYPOTHYROIDISM
     Route: 048
     Dates: start: 1980
  10. COQ10 [Concomitant]
     Route: 048
     Dates: start: 2008

REACTIONS (6)
  - Atrioventricular block [Not Recovered/Not Resolved]
  - Stomatitis [Not Recovered/Not Resolved]
  - Epistaxis [Not Recovered/Not Resolved]
  - Dizziness [Not Recovered/Not Resolved]
  - Eye haemorrhage [Not Recovered/Not Resolved]
  - Ocular hyperaemia [Not Recovered/Not Resolved]
